FAERS Safety Report 18943454 (Version 2)
Quarter: 2021Q1

REPORT INFORMATION
  Report Type: Spontaneous
  Country: US (occurrence: US)
  Receive Date: 20210226
  Receipt Date: 20210330
  Transmission Date: 20210420
  Serious: Yes (Other)
  Sender: FDA-Public Use
  Company Number: US-JNJFOC-20210233483

PATIENT
  Age: 52 Year
  Sex: Female

DRUGS (2)
  1. CABOTEGRAVIR [Suspect]
     Active Substance: CABOTEGRAVIR
     Indication: HIV INFECTION
     Dosage: OCT/NOV 2016
     Route: 065
     Dates: start: 2016
  2. RILPIVIRINE [Suspect]
     Active Substance: RILPIVIRINE
     Indication: HIV INFECTION
     Dosage: STARTED IN OCT/NOV 2016
     Route: 030
     Dates: start: 2016

REACTIONS (10)
  - Gait inability [Unknown]
  - Myalgia [Unknown]
  - Diabetes mellitus [Unknown]
  - Injection site pain [Recovering/Resolving]
  - Mass [Recovering/Resolving]
  - Illness [Not Recovered/Not Resolved]
  - Pain [Recovered/Resolved]
  - Loss of personal independence in daily activities [Unknown]
  - Contusion [Not Recovered/Not Resolved]
  - COVID-19 [Not Recovered/Not Resolved]
